FAERS Safety Report 12856727 (Version 1)
Quarter: 2016Q4

REPORT INFORMATION
  Report Type: Spontaneous
  Country: DE (occurrence: DE)
  Receive Date: 20161018
  Receipt Date: 20161018
  Transmission Date: 20170207
  Serious: Yes (Hospitalization, Other)
  Sender: FDA-Public Use
  Company Number: PHHY2016DE086074

PATIENT
  Sex: Male
  Weight: 86 kg

DRUGS (3)
  1. CELEBREX [Concomitant]
     Active Substance: CELECOXIB
     Indication: MUSCULOSKELETAL PAIN
     Dosage: 20 MG, QD
     Route: 048
  2. TILIDINE [Concomitant]
     Active Substance: TILIDINE
     Indication: MUSCULOSKELETAL PAIN
     Dosage: 300 MG, QD
     Route: 048
  3. TASIGNA [Suspect]
     Active Substance: NILOTINIB
     Indication: CHRONIC MYELOID LEUKAEMIA
     Dosage: 800 MG, QD
     Route: 048
     Dates: start: 20130129, end: 20160613

REACTIONS (3)
  - Carotid artery stenosis [Recovered/Resolved]
  - Hypercholesterolaemia [Unknown]
  - Cerebral infarction [Recovered/Resolved]

NARRATIVE: CASE EVENT DATE: 20160613
